FAERS Safety Report 10452673 (Version 2)
Quarter: 2014Q4

REPORT INFORMATION
  Report Type: Spontaneous
  Country: US (occurrence: US)
  Receive Date: 20140915
  Receipt Date: 20141103
  Transmission Date: 20150528
  Serious: No
  Sender: FDA-Public Use
  Company Number: US-PFIZER INC-2014252899

PATIENT
  Age: 68 Year
  Sex: Female

DRUGS (2)
  1. SUTENT [Suspect]
     Active Substance: SUNITINIB MALATE
     Indication: RENAL CANCER
     Dosage: 50 MG, 1X/DAY (ONCE DAILY)
     Route: 048
     Dates: start: 20140801
  2. SUTENT [Suspect]
     Active Substance: SUNITINIB MALATE
     Dosage: 37.5 MG, 1X/DAY
     Route: 048
     Dates: start: 20140927

REACTIONS (3)
  - Fatigue [Unknown]
  - Palpitations [Unknown]
  - Dehydration [Unknown]

NARRATIVE: CASE EVENT DATE: 20140910
